FAERS Safety Report 18035729 (Version 1)
Quarter: 2020Q3

REPORT INFORMATION
  Report Type: Spontaneous
  Country: FR (occurrence: FR)
  Receive Date: 20200717
  Receipt Date: 20200717
  Transmission Date: 20201103
  Serious: Yes (Other)
  Sender: FDA-Public Use
  Company Number: FR-CADILA HEALTHCARE LIMITED-FR-ZYDUS-023043

PATIENT

DRUGS (3)
  1. TELMISARTAN. [Suspect]
     Active Substance: TELMISARTAN
     Indication: HYPERTENSION
     Dosage: 1 DOSAGE FORM,(INTERVAL :1 DAYS)
     Route: 048
     Dates: start: 2013
  2. BILTRICIDE [Suspect]
     Active Substance: PRAZIQUANTEL
     Indication: PAIN
     Dosage: 1 DOSAGE FORM,(INTERVAL :1 WEEKS)
     Route: 048
     Dates: start: 20171225, end: 20180618
  3. ZENTEL [Suspect]
     Active Substance: ALBENDAZOLE
     Indication: PAIN
     Dosage: 1 DOSAGE FORM,(INTERVAL :1 WEEKS)
     Route: 048
     Dates: start: 20171225, end: 20180618

REACTIONS (1)
  - Hepatitis [Not Recovered/Not Resolved]

NARRATIVE: CASE EVENT DATE: 20180514
